FAERS Safety Report 8501817 (Version 2)
Quarter: 2013Q2

REPORT INFORMATION
  Report Type: Spontaneous
  Country: US (occurrence: None)
  Receive Date: 20120327
  Receipt Date: 20120709
  Transmission Date: 20140414
  Serious: Yes (Other)
  Sender: FDA-Public Use
  Company Number: PHHY2010US21339

PATIENT
  Age: 54 Year
  Sex: Female

DRUGS (1)
  1. GLEEVEC [Suspect]
     Indication: GASTROINTESTINAL STROMAL TUMOUR
     Dosage: 300 MG, DAILY, ORAL
     Route: 048
     Dates: start: 200508

REACTIONS (6)
  - GASTROINTESTINAL HAEMORRHAGE [None]
  - FLUID RETENTION [None]
  - MUSCLE SPASMS [None]
  - FATIGUE [None]
  - NAUSEA [None]
  - Diarrhoea [None]
